FAERS Safety Report 22023679 (Version 2)
Quarter: 2023Q1

REPORT INFORMATION
  Report Type: Other
  Country: DE (occurrence: DE)
  Receive Date: 20230223
  Receipt Date: 20230304
  Transmission Date: 20230418
  Serious: Yes (Other)
  Sender: FDA-Public Use
  Company Number: DE-CELLTRION INC.-2023DE003586

PATIENT

DRUGS (17)
  1. TRUXIMA [Suspect]
     Active Substance: RITUXIMAB-ABBS
     Indication: Diffuse large B-cell lymphoma
     Dosage: THIRD LINE WITH POLATUZUMAB AND BENDAMUSTINE, THREE TIMES
     Dates: start: 20220613, end: 20220920
  2. TRUXIMA [Suspect]
     Active Substance: RITUXIMAB-ABBS
     Dosage: SECOND LINE WITH DHAP, TWICE
     Dates: start: 20220330, end: 20220525
  3. TRUXIMA [Suspect]
     Active Substance: RITUXIMAB-ABBS
     Dosage: FIRST LINE WITH CHOP
     Dates: start: 20220701, end: 20221101
  4. BENDAMUSTINE [Suspect]
     Active Substance: BENDAMUSTINE
     Indication: Diffuse large B-cell lymphoma
     Dosage: THIRD LINE WITH POLATUZUMAB AND RITUXIMAB, THREE TIMES
     Dates: start: 20220613, end: 20220920
  5. CYCLOPHOSPHAMIDE [Suspect]
     Active Substance: CYCLOPHOSPHAMIDE
     Indication: Diffuse large B-cell lymphoma
     Dosage: FIRST LINE WITH RITUXIMAB, AS A PART OF CHOP
     Dates: start: 20210701, end: 20211101
  6. OBINUTUZUMAB [Suspect]
     Active Substance: OBINUTUZUMAB
     Indication: Diffuse large B-cell lymphoma
     Dosage: FOURTH LINE WITH VENETOCLAX, IBRUTINIB, PREDNISOLONE, LENALOMIDE AND RADIOTHERAPY
     Route: 042
     Dates: start: 20220927, end: 20221117
  7. VENETOCLAX [Suspect]
     Active Substance: VENETOCLAX
     Indication: Diffuse large B-cell lymphoma
     Dosage: FOURTH LINE WITH OBINUTUZUMAB, IBRUTINIB, PREDNISOLONE, LENALOMIDE AND RADIOTHERAPY;
     Dates: start: 20220927, end: 20221117
  8. CYTARABINE [Suspect]
     Active Substance: CYTARABINE
     Indication: Diffuse large B-cell lymphoma
     Dosage: SECOND LINE WITH RITUXIMAB, TWICE, AS A PART OF DHAP
     Dates: start: 20220330, end: 20220525
  9. POLIVY [Suspect]
     Active Substance: POLATUZUMAB VEDOTIN-PIIQ
     Indication: Diffuse large B-cell lymphoma
     Dosage: (FOR PATIENT LESS THAN OR EQUAL TO 30 KG-150 MG IV; GREATER THAN OR EQUAL TO 30 KG WEIGHT- 300 MG IV
     Dates: start: 20220613, end: 20220920
  10. DEXAMETHASONE [Suspect]
     Active Substance: DEXAMETHASONE
     Indication: Diffuse large B-cell lymphoma
     Dosage: SECOND LINE WITH RITUXIMAB, TWICE, AS A PART OF DHAP
     Dates: start: 20220330, end: 20220525
  11. REVLIMID [Suspect]
     Active Substance: LENALIDOMIDE
     Indication: Diffuse large B-cell lymphoma
     Dosage: FOURTH LINE WITH OBINUTUZUMAB, IBRUTINIB, PREDNISOLONE, VENETOCLAX AND RADIOTHERAPY
     Dates: start: 20220927, end: 20221117
  12. PREDNISOLONE [Suspect]
     Active Substance: PREDNISOLONE
     Indication: Diffuse large B-cell lymphoma
     Dosage: FOURTH LINE WITH OBINUTUZUMAB, IBRUTINIB, VENETCLAX, LENALOMIDE AND RADIOTHERAPY
     Dates: start: 20220927, end: 20221117
  13. DOXORUBICIN HYDROCHLORIDE [Suspect]
     Active Substance: DOXORUBICIN HYDROCHLORIDE
     Indication: Diffuse large B-cell lymphoma
     Dosage: FIRST LINE WITH RITUXIMAB, AS A PART OF CHOP
     Dates: start: 20210701, end: 20211101
  14. IMBRUVICA [Suspect]
     Active Substance: IBRUTINIB
     Indication: Diffuse large B-cell lymphoma
     Dosage: FOURTH LINE WITH OBINUTUZUMAB, VENETOCLAX, PREDNISOLONE, LENALOMIDE AND RADIOTHERAPY
     Route: 048
     Dates: start: 20220927, end: 20221117
  15. VINCRISTINE SULFATE [Suspect]
     Active Substance: VINCRISTINE SULFATE
     Indication: Diffuse large B-cell lymphoma
     Dosage: FIRST LINE WITH RITUXIMAB, AS A PART OF CHOP
     Dates: start: 20210701, end: 20211101
  16. PREDNISONE [Suspect]
     Active Substance: PREDNISONE
     Indication: Diffuse large B-cell lymphoma
     Dosage: FIRST LINE WITH RITUXIMAB, AS A PART OF CHOP
     Dates: start: 20210701, end: 20211101
  17. CISPLATIN [Suspect]
     Active Substance: CISPLATIN
     Indication: Diffuse large B-cell lymphoma
     Dosage: SECOND LINE WITH RITUXIMAB, TWICE, AS A PART OF DHA
     Dates: start: 20220330, end: 20220525

REACTIONS (3)
  - Lymphoma [Unknown]
  - Disease progression [Unknown]
  - Product use issue [Unknown]
